FAERS Safety Report 14998266 (Version 1)
Quarter: 2018Q2

REPORT INFORMATION
  Report Type: Spontaneous
  Country: BR (occurrence: BR)
  Receive Date: 20180611
  Receipt Date: 20180611
  Transmission Date: 20180711
  Serious: Yes (Other)
  Sender: FDA-Public Use
  Company Number: BR-ALLERGAN-1829635US

PATIENT
  Age: 26 Year
  Sex: Female

DRUGS (1)
  1. AZELAIC ACID UNK [Suspect]
     Active Substance: AZELAIC ACID
     Indication: ACNE
     Dosage: UNK, QD
     Route: 061
     Dates: start: 2016

REACTIONS (2)
  - Maternal exposure during pregnancy [Unknown]
  - Foetal malposition [Unknown]

NARRATIVE: CASE EVENT DATE: 2016
